FAERS Safety Report 20526569 (Version 1)
Quarter: 2022Q1

REPORT INFORMATION
  Report Type: Spontaneous
  Country: US (occurrence: US)
  Receive Date: 20220228
  Receipt Date: 20220228
  Transmission Date: 20220424
  Serious: Yes (Other)
  Sender: FDA-Public Use
  Company Number: US-PFIZER INC-202200275848

PATIENT
  Age: 61 Year
  Sex: Male
  Weight: 97.07 kg

DRUGS (1)
  1. XELJANZ [Suspect]
     Active Substance: TOFACITINIB CITRATE
     Indication: Rheumatoid arthritis
     Dosage: 5 MG, 2X/DAY (HALF A TABLET IN THE MORNING AND HALF AT NIGHT)

REACTIONS (2)
  - Myocardial infarction [Unknown]
  - Wrong technique in product usage process [Unknown]
